FAERS Safety Report 7202639-7 (Version None)
Quarter: 2010Q4

REPORT INFORMATION
  Report Type: 
  Country: None (occurrence: None)
  Receive Date: 20101229
  Receipt Date: 20101117
  Transmission Date: 20110411
  Serious: No
  Sender: FDA-Public Use
  Company Number: US-PFIZER INC-2010150815

PATIENT
  Sex: Male
  Weight: 79 kg

DRUGS (4)
  1. LIPITOR [Suspect]
     Indication: BLOOD CHOLESTEROL INCREASED
     Dosage: 20 MG, 1X/DAY
     Route: 048
  2. LISINOPRIL [Concomitant]
     Indication: HYPERTENSION
     Dosage: 20 MG, 1X/DAY
  3. ACETYLSALICYLIC ACID [Concomitant]
     Dosage: UNK MG, 1X/DAY
     Route: 048
  4. FISH OIL [Concomitant]
     Dosage: 1200 MG, 1X/DAY

REACTIONS (1)
  - SKIN ODOUR ABNORMAL [None]
